FAERS Safety Report 23851253 (Version 1)
Quarter: 2024Q2

REPORT INFORMATION
  Report Type: Spontaneous
  Country: CN (occurrence: CN)
  Receive Date: 20240514
  Receipt Date: 20240514
  Transmission Date: 20240716
  Serious: Yes (Other)
  Sender: FDA-Public Use
  Company Number: CN-AUROBINDO-AUR-APL-2024-022423

PATIENT
  Age: 35 Year
  Sex: Male

DRUGS (7)
  1. PANTOPRAZOLE SODIUM [Suspect]
     Active Substance: PANTOPRAZOLE SODIUM
     Indication: Prophylaxis against gastrointestinal ulcer
     Dosage: 40 MILLIGRAM, ONCE A DAY
     Route: 065
     Dates: start: 20240412, end: 20240414
  2. ASPIRIN [Suspect]
     Active Substance: ASPIRIN
     Indication: Antiplatelet therapy
     Dosage: 0.1 GRAM, ONCE A DAY
     Route: 065
     Dates: start: 20240412, end: 20240415
  3. ATORVASTATIN CALCIUM [Suspect]
     Active Substance: ATORVASTATIN CALCIUM
     Indication: Arteriosclerosis
     Dosage: 20 MILLIGRAM, ONCE A DAY
     Route: 065
     Dates: start: 20240412, end: 20240415
  4. BETAMETHASONE [Suspect]
     Active Substance: BETAMETHASONE\BETAMETHASONE DIPROPIONATE
     Indication: Dizziness
     Dosage: 20 MILLIGRAM, ONCE A DAY (20MG+NS250M)
     Route: 041
     Dates: start: 20240412, end: 20240414
  5. CLOPIDOGREL BISULFATE [Suspect]
     Active Substance: CLOPIDOGREL BISULFATE
     Indication: Antiplatelet therapy
     Dosage: 75 MILLIGRAM, ONCE A DAY
     Route: 065
     Dates: start: 20240412, end: 20240414
  6. GASTRODIN [Suspect]
     Active Substance: GASTRODIN
     Indication: Peripheral vascular disorder
     Dosage: 0.6 GRAM, ONCE A DAY (0.6G+NS250ML)
     Route: 041
     Dates: start: 20240412, end: 20240413
  7. SODIUM CHLORIDE [Concomitant]
     Active Substance: SODIUM CHLORIDE
     Indication: Product used for unknown indication
     Dosage: UNK
     Route: 065

REACTIONS (5)
  - Rash [Recovered/Resolved]
  - Erythema [Recovered/Resolved]
  - Rash pustular [Recovering/Resolving]
  - Pruritus [Recovered/Resolved]
  - Facial discomfort [Recovered/Resolved]

NARRATIVE: CASE EVENT DATE: 20240413
